FAERS Safety Report 14285422 (Version 1)
Quarter: 2017Q4

REPORT INFORMATION
  Report Type: Spontaneous
  Country: US (occurrence: US)
  Receive Date: 20171214
  Receipt Date: 20171214
  Transmission Date: 20180321
  Serious: No
  Sender: FDA-Public Use
  Company Number: US-PFIZER INC-2017528738

PATIENT
  Sex: Female

DRUGS (1)
  1. ATROPINE SULFATE/DIPHENOXYLATE HYDROCHLORIDE [Suspect]
     Active Substance: ATROPINE SULFATE\DIPHENOXYLATE HYDROCHLORIDE
     Indication: DIARRHOEA
     Dosage: UNK

REACTIONS (8)
  - Dizziness [Unknown]
  - Impaired driving ability [Unknown]
  - Malaise [Unknown]
  - Decreased appetite [Unknown]
  - Blood pressure increased [Unknown]
  - Feeling abnormal [Unknown]
  - Hypoacusis [Unknown]
  - Fatigue [Unknown]
